FAERS Safety Report 25037892 (Version 3)
Quarter: 2025Q4

REPORT INFORMATION
  Report Type: Spontaneous
  Country: US (occurrence: US)
  Receive Date: 20250304
  Receipt Date: 20251124
  Transmission Date: 20260119
  Serious: No
  Sender: BELCHER PHARMACEUTICALS
  Company Number: US-BELCHER PHARMACEUTICALS, LLC-2025US000848

PATIENT

DRUGS (1)
  1. EPINEPHRINE [Suspect]
     Active Substance: EPINEPHRINE
     Indication: Anaphylactic reaction
     Dosage: 1 MG/ML (TWO DOSES )
     Route: 030
     Dates: start: 20241211

REACTIONS (1)
  - Drug effect less than expected [Unknown]

NARRATIVE: CASE EVENT DATE: 20241211
